FAERS Safety Report 24775668 (Version 2)
Quarter: 2025Q1

REPORT INFORMATION
  Report Type: Spontaneous
  Country: US (occurrence: US)
  Receive Date: 20241226
  Receipt Date: 20250108
  Transmission Date: 20250409
  Serious: Yes (Other)
  Sender: TEVA
  Company Number: US-TEVA-VS-3277833

PATIENT
  Age: 77 Year
  Sex: Female

DRUGS (1)
  1. LEVOTHYROXINE [Suspect]
     Active Substance: LEVOTHYROXINE
     Indication: Post procedural hypothyroidism
     Route: 065

REACTIONS (3)
  - Periorbital oedema [Recovered/Resolved]
  - Reaction to excipient [Recovered/Resolved]
  - Type IV hypersensitivity reaction [Recovered/Resolved]
